FAERS Safety Report 4687706-4 (Version None)
Quarter: 2005Q2

REPORT INFORMATION
  Report Type: 
  Country: None (occurrence: None)
  Receive Date: 20050610
  Receipt Date: 20050602
  Transmission Date: 20051028
  Serious: Yes (Death)
  Sender: FDA-Public Use
  Company Number: 200515110GDDC

PATIENT
  Age: 81 Year
  Sex: Male
  Weight: 88 kg

DRUGS (5)
  1. LASIX [Suspect]
     Indication: CARDIAC FAILURE CONGESTIVE
  2. CORDARONE [Suspect]
     Indication: ARRHYTHMIA
     Dates: start: 19890101
  3. DIAMICRON [Suspect]
     Indication: DIABETES MELLITUS
     Dates: start: 19910101
  4. SLOW-K [Suspect]
     Indication: CARDIAC FAILURE CONGESTIVE
  5. DIGOXIN [Suspect]
     Indication: CARDIAC FAILURE CONGESTIVE

REACTIONS (1)
  - PULMONARY FIBROSIS [None]
